FAERS Safety Report 6511241-1 (Version None)
Quarter: 2009Q4

REPORT INFORMATION
  Report Type: 
  Country: None (occurrence: None)
  Receive Date: 20091222
  Receipt Date: 20090428
  Transmission Date: 20100525
  Serious: Yes (Hospitalization, Disabling, Other)
  Sender: FDA-Public Use
  Company Number: US-ASTRAZENECA-2009UW06847

PATIENT
  Age: 24227 Day
  Sex: Male
  Weight: 72.6 kg

DRUGS (1)
  1. CRESTOR [Suspect]
     Indication: DYSLIPIDAEMIA
     Route: 048
     Dates: start: 20081128, end: 20090202

REACTIONS (2)
  - MUSCULAR WEAKNESS [None]
  - RHABDOMYOLYSIS [None]
